FAERS Safety Report 6822238-6 (Version None)
Quarter: 2010Q3

REPORT INFORMATION
  Report Type: 
  Country: None (occurrence: None)
  Receive Date: 20100708
  Receipt Date: 20100630
  Transmission Date: 20110219
  Serious: Yes (Death)
  Sender: FDA-Public Use
  Company Number: JP-ABBOTT-10P-087-0652067-00

PATIENT
  Age: 53 Year
  Sex: Female

DRUGS (4)
  1. CEFDINIR [Suspect]
     Indication: CYSTITIS
     Route: 048
  2. PIRETAZOL [Suspect]
     Indication: PRODUCT USED FOR UNKNOWN INDICATION
  3. VANCOMYCIN [Concomitant]
     Indication: PRODUCT USED FOR UNKNOWN INDICATION
  4. PROTEASE INHIBITORS [Concomitant]
     Indication: PRODUCT USED FOR UNKNOWN INDICATION

REACTIONS (4)
  - ILEUS [None]
  - MEGACOLON [None]
  - PNEUMONIA KLEBSIELLA [None]
  - PSEUDOMEMBRANOUS COLITIS [None]
